FAERS Safety Report 6812198-6 (Version None)
Quarter: 2010Q3

REPORT INFORMATION
  Report Type: 
  Country: None (occurrence: None)
  Receive Date: 20100701
  Receipt Date: 20100628
  Transmission Date: 20110219
  Serious: Yes (Other)
  Sender: FDA-Public Use
  Company Number: US-ELI_LILLY_AND_COMPANY-US201002003601

PATIENT
  Sex: Male
  Weight: 104 kg

DRUGS (14)
  1. BYETTA [Suspect]
     Indication: TYPE 2 DIABETES MELLITUS
     Dosage: 5 UG, 2/D
     Route: 065
     Dates: start: 20060901, end: 20060930
  2. BYETTA [Suspect]
     Dosage: 10 UG, 2/D
     Route: 065
     Dates: start: 20061001, end: 20081119
  3. GLIPIZIDE [Concomitant]
     Indication: TYPE 2 DIABETES MELLITUS
     Dosage: 10 MG, 2/D
     Route: 048
     Dates: start: 20060101
  4. ACTOS [Concomitant]
     Indication: TYPE 2 DIABETES MELLITUS
     Dosage: 30 MG, DAILY (1/D)
     Route: 048
     Dates: start: 20070101
  5. METFORMIN HYDROCHLORIDE [Concomitant]
     Indication: TYPE 2 DIABETES MELLITUS
     Dosage: 500 MG, 2/D
     Route: 048
     Dates: start: 20070101
  6. ZOCOR [Concomitant]
     Indication: BLOOD CHOLESTEROL
     Dosage: 40 MG, EACH EVENING
     Route: 048
     Dates: start: 20060101
  7. LISINOPRIL [Concomitant]
     Indication: HYPERTENSION
     Dosage: 20 MG, DAILY (1/D)
     Route: 048
     Dates: start: 20080101
  8. BENADRYL [Concomitant]
     Dosage: 25 MG, 2/D
     Route: 048
  9. MAGNESIUM GLUCONATE [Concomitant]
     Dosage: 1000 MG, 2/D
     Route: 048
  10. MULTI-VITAMIN [Concomitant]
     Dosage: 1 D/F, DAILY (1/D)
     Route: 048
  11. MECLIZINE HYDROCHLORIDE [Concomitant]
     Dosage: 25 MG, AS NEEDED
     Route: 048
  12. EXCEDRIN (MIGRAINE) [Concomitant]
     Indication: HEADACHE
     Dosage: 500 MG, AS NEEDED
     Route: 048
     Dates: start: 20070101
  13. ALEVE (CAPLET) [Concomitant]
     Indication: BACK PAIN
     Dosage: 660 MG, AS NEEDED
     Route: 048
     Dates: start: 20070101
  14. TYLENOL                                 /SCH/ [Concomitant]
     Indication: ARTHRITIS
     Dates: start: 20010101, end: 20090501

REACTIONS (2)
  - PANCREATITIS ACUTE [None]
  - RENAL INJURY [None]
